FAERS Safety Report 13374305 (Version 2)
Quarter: 2017Q4

REPORT INFORMATION
  Report Type: Report from Study
  Country: None (occurrence: DE)
  Receive Date: 20170327
  Receipt Date: 20171124
  Transmission Date: 20180320
  Serious: Yes (Hospitalization, Disabling)
  Sender: FDA-Public Use
  Company Number: DE-ABBVIE-17P-062-1913046-00

PATIENT
  Age: 44 Year
  Sex: Female

DRUGS (3)
  1. ORTHODON [Concomitant]
     Indication: PRODUCT USED FOR UNKNOWN INDICATION
  2. MARCUMAR [Concomitant]
     Active Substance: PHENPROCOUMON
     Indication: PRODUCT USED FOR UNKNOWN INDICATION
  3. HUMIRA [Suspect]
     Active Substance: ADALIMUMAB
     Indication: CROHN^S DISEASE
     Route: 058
     Dates: start: 20130901

REACTIONS (10)
  - Memory impairment [Not Recovered/Not Resolved]
  - Cardiac valve fibroelastoma [Recovering/Resolving]
  - Epilepsy [Not Recovered/Not Resolved]
  - Memory impairment [Recovering/Resolving]
  - Cerebrovascular accident [Recovering/Resolving]
  - Coronary artery thrombosis [Not Recovered/Not Resolved]
  - Balance disorder [Recovering/Resolving]
  - Balance disorder [Not Recovered/Not Resolved]
  - Scar pain [Recovering/Resolving]
  - Heart rate increased [Not Recovered/Not Resolved]

NARRATIVE: CASE EVENT DATE: 2015
